FAERS Safety Report 25005286 (Version 2)
Quarter: 2025Q3

REPORT INFORMATION
  Report Type: Spontaneous
  Country: EU (occurrence: EU)
  Receive Date: 20250224
  Receipt Date: 20250803
  Transmission Date: 20251020
  Serious: Yes (Life-Threatening)
  Sender: ALEXION PHARMACEUTICALS
  Company Number: None

PATIENT
  Age: 81 Year
  Sex: Female
  Weight: 59 kg

DRUGS (1)
  1. DAPAGLIFLOZIN [Suspect]
     Active Substance: DAPAGLIFLOZIN
     Indication: Cardiac failure
     Dosage: 10 MILLIGRAM, QD
     Dates: start: 20241019, end: 20250115

REACTIONS (3)
  - Pollakiuria [Recovering/Resolving]
  - Weight decreased [Recovering/Resolving]
  - Dehydration [Recovering/Resolving]
